FAERS Safety Report 5319046-4 (Version None)
Quarter: 2007Q2

REPORT INFORMATION
  Report Type: 
  Country: None (occurrence: None)
  Receive Date: 20070501
  Receipt Date: 20070416
  Transmission Date: 20071010
  Serious: Yes (Hospitalization)
  Sender: FDA-Public Use
  Company Number: ABWAT-07-0342

PATIENT
  Age: 59 Year
  Sex: Female
  Weight: 145 kg

DRUGS (1)
  1. ABRAXANE [Suspect]
     Indication: BREAST CANCER
     Dosage: LASEE IMAGE
     Route: 042
     Dates: start: 20070322, end: 20070322

REACTIONS (6)
  - BLOOD BILIRUBIN INCREASED [None]
  - DEHYDRATION [None]
  - DRUG TOXICITY [None]
  - MUCOSAL INFLAMMATION [None]
  - PAIN [None]
  - PHARYNGOLARYNGEAL PAIN [None]
